FAERS Safety Report 21720111 (Version 1)
Quarter: 2022Q4

REPORT INFORMATION
  Report Type: Spontaneous
  Country: GB (occurrence: None)
  Receive Date: 20221213
  Receipt Date: 20221213
  Transmission Date: 20230112
  Serious: Yes (Other)
  Sender: FDA-Public Use
  Company Number: GB-Merck Healthcare KGaA-9371006

PATIENT
  Sex: Female

DRUGS (1)
  1. REBIF [Suspect]
     Active Substance: INTERFERON BETA-1A
     Indication: Multiple sclerosis
     Dosage: 0.5ML (6MIU) 1.5ML MULTIDOSE CARTRIDGE, 3 DOSES PER CARTRIDGES
     Route: 058

REACTIONS (1)
  - Neoplasm malignant [Unknown]
